FAERS Safety Report 10146308 (Version 1)
Quarter: 2014Q2

REPORT INFORMATION
  Report Type: Spontaneous
  Country: US (occurrence: ES)
  Receive Date: 20140501
  Receipt Date: 20140501
  Transmission Date: 20141212
  Serious: Yes (Hospitalization)
  Sender: FDA-Public Use
  Company Number: ES-FRI-1000066947

PATIENT
  Age: 64 Year
  Sex: Male
  Weight: 83 kg

DRUGS (7)
  1. ROFLUMILAST [Suspect]
     Indication: CHRONIC OBSTRUCTIVE PULMONARY DISEASE
     Dosage: 500 MCG
     Route: 048
     Dates: start: 2011
  2. SPIRIVA [Concomitant]
  3. RILAST [Concomitant]
  4. TAVANIC [Concomitant]
  5. SINGULAIR [Concomitant]
     Dosage: 10 MG
  6. CRESTOR [Concomitant]
     Dosage: 10 MG
  7. DACORTIN [Concomitant]

REACTIONS (1)
  - Chest pain [Not Recovered/Not Resolved]
